FAERS Safety Report 12753378 (Version 3)
Quarter: 2019Q3

REPORT INFORMATION
  Report Type: Report from Study
  Country: US (occurrence: US)
  Receive Date: 20160916
  Receipt Date: 20190904
  Transmission Date: 20191004
  Serious: Yes (Hospitalization, Other)
  Sender: FDA-Public Use
  Company Number: US-AMGEN-USASL2016121981

PATIENT
  Age: 56 Year
  Sex: Male

DRUGS (3)
  1. AMOXICILLIN. [Suspect]
     Active Substance: AMOXICILLIN
     Indication: PRODUCT USED FOR UNKNOWN INDICATION
     Dosage: 800 MILLIGRAM
     Route: 065
  2. ENBREL [Suspect]
     Active Substance: ETANERCEPT
     Dosage: 50 MILLIGRAM, QWK
     Route: 065
  3. ENBREL [Suspect]
     Active Substance: ETANERCEPT
     Indication: PSORIATIC ARTHROPATHY
     Dosage: 50 MG, QWK
     Route: 065
     Dates: start: 201604

REACTIONS (11)
  - Feeling abnormal [Unknown]
  - Upper respiratory tract infection [Unknown]
  - Prostate examination abnormal [Unknown]
  - Arthralgia [Unknown]
  - Psoriasis [Unknown]
  - Malaise [Unknown]
  - Diarrhoea [Unknown]
  - Bone disorder [Unknown]
  - Body temperature increased [Unknown]
  - Haematochezia [Unknown]
  - Headache [Unknown]
